FAERS Safety Report 6435564-X (Version None)
Quarter: 2009Q4

REPORT INFORMATION
  Report Type: 
  Country: None (occurrence: None)
  Receive Date: 20091111
  Receipt Date: 20091104
  Transmission Date: 20100525
  Serious: Yes (Death)
  Sender: FDA-Public Use
  Company Number: FR-TEVA-214456ISR

PATIENT
  Sex: Male

DRUGS (16)
  1. CISPLATIN [Suspect]
     Indication: GASTRIC CANCER
     Route: 042
     Dates: start: 20080114, end: 20080114
  2. EPIRUBICIN [Suspect]
     Indication: GASTRIC CANCER
     Route: 042
     Dates: start: 20080114, end: 20080114
  3. IRINOTECAN HCL [Suspect]
     Indication: GASTRIC CANCER
     Route: 042
     Dates: start: 20070924, end: 20071227
  4. FLUOROURACIL [Suspect]
     Indication: GASTRIC CANCER
     Route: 042
     Dates: start: 20070924, end: 20071228
  5. FOLINIC ACID [Suspect]
     Indication: GASTRIC CANCER
     Route: 042
     Dates: start: 20070924, end: 20071227
  6. CAPECITABINE [Suspect]
     Indication: GASTRIC CANCER
     Route: 048
     Dates: start: 20080114
  7. OXYCODONE HCL [Concomitant]
  8. FUROSEMIDE [Concomitant]
  9. SERETIDE [Concomitant]
  10. ALLOPURINOL [Concomitant]
  11. VERAPAMIL HYDROCHLORIDE [Concomitant]
  12. TIOTROPIUM BROMIDE [Concomitant]
  13. TAMSULOSIN [Concomitant]
  14. PANTOPRAZOLE [Concomitant]
  15. ALUMINIUM PHOSPHATE GEL [Concomitant]
  16. OXYCODONE HCL [Concomitant]

REACTIONS (1)
  - GENERAL PHYSICAL HEALTH DETERIORATION [None]
